FAERS Safety Report 24216297 (Version 5)
Quarter: 2024Q4

REPORT INFORMATION
  Report Type: Spontaneous
  Country: US (occurrence: US)
  Receive Date: 20240816
  Receipt Date: 20241112
  Transmission Date: 20250115
  Serious: Yes (Other)
  Sender: BRISTOL-MYERS SQUIBB COMPANY
  Company Number: US-EXELIXIS-CABO-24079108

PATIENT
  Age: 76 Year
  Sex: Male
  Weight: 71.383 kg

DRUGS (3)
  1. OPDIVO [Suspect]
     Active Substance: NIVOLUMAB
     Indication: Renal cancer
  2. CABOMETYX [Suspect]
     Active Substance: CABOZANTINIB S-MALATE
     Indication: Renal cancer
     Route: 048
     Dates: start: 20240608
  3. ONDANSETRON [Concomitant]
     Active Substance: ONDANSETRON
     Indication: Nausea

REACTIONS (14)
  - Oesophageal stenosis [Unknown]
  - Weight decreased [Unknown]
  - Pain in extremity [Not Recovered/Not Resolved]
  - Pruritus [Unknown]
  - Glossitis [Unknown]
  - Glossodynia [Unknown]
  - Feeding disorder [Recovering/Resolving]
  - Peripheral swelling [Unknown]
  - General physical health deterioration [Unknown]
  - Mood altered [Unknown]
  - Feeling hot [Unknown]
  - Irritability [Unknown]
  - Tongue erythema [Unknown]
  - Skin ulcer [Recovering/Resolving]

NARRATIVE: CASE EVENT DATE: 20240801
